FAERS Safety Report 6019160-4 (Version None)
Quarter: 2008Q4

REPORT INFORMATION
  Report Type: 
  Country: None (occurrence: None)
  Receive Date: 20081224
  Receipt Date: 20081216
  Transmission Date: 20090506
  Serious: Yes (Hospitalization)
  Sender: FDA-Public Use
  Company Number: IT-PFIZER INC-2008096341

PATIENT

DRUGS (5)
  1. SUNITINIB MALATE [Suspect]
     Indication: GASTROINTESTINAL STROMAL TUMOUR
     Dosage: 37.5 MG, 1X/DAY
     Route: 048
     Dates: start: 20080618
  2. SIMVASTATIN [Concomitant]
     Route: 048
     Dates: start: 20051017
  3. ATENOLOL [Concomitant]
     Route: 048
     Dates: start: 20051017
  4. ESOMEPRAZOLE MAGNESIUM [Concomitant]
     Route: 048
     Dates: start: 20050802
  5. HEPARIN [Concomitant]
     Route: 058
     Dates: start: 20080928

REACTIONS (2)
  - MUSCLE HAEMORRHAGE [None]
  - SCIATICA [None]
